FAERS Safety Report 5392934-9 (Version None)
Quarter: 2007Q3

REPORT INFORMATION
  Report Type: 
  Country: None (occurrence: None)
  Receive Date: 20070718
  Receipt Date: 20070706
  Transmission Date: 20080115
  Serious: Yes (Disabling)
  Sender: FDA-Public Use
  Company Number: GXKR2007GB05872

PATIENT
  Age: 50 Year
  Sex: Female
  Weight: 53 kg

DRUGS (5)
  1. GABAPENTIN [Suspect]
     Dosage: 100 MG, QW3
     Dates: start: 20051001, end: 20051011
  2. DICLOFENAC (DICLOFENAC) [Concomitant]
  3. ACETAMINOPHEN [Concomitant]
  4. PROPANOLOL (PROPANOLOL) [Concomitant]
  5. RANITIDINE [Concomitant]

REACTIONS (6)
  - CEREBRAL HAEMORRHAGE [None]
  - CEREBRAL ISCHAEMIA [None]
  - DISORIENTATION [None]
  - DYSPHASIA [None]
  - HALLUCINATION, VISUAL [None]
  - ILLUSION [None]
